FAERS Safety Report 9276678 (Version 1)
Quarter: 2013Q2

REPORT INFORMATION
  Report Type: Report from Study
  Country: US (occurrence: US)
  Receive Date: 20130507
  Receipt Date: 20130507
  Transmission Date: 20140414
  Serious: Yes (Other)
  Sender: FDA-Public Use
  Company Number: US-TEVA-402517USA

PATIENT
  Age: 70 Year
  Sex: Male

DRUGS (18)
  1. PROAIR HFA [Suspect]
     Indication: CHRONIC OBSTRUCTIVE PULMONARY DISEASE
     Dosage: 2 PUFF BID PRN
     Route: 055
  2. HUMIRA [Suspect]
     Indication: COLITIS ULCERATIVE
     Dosage: 160 MG
     Dates: start: 20130124, end: 20130124
  3. HUMIRA [Suspect]
     Dates: start: 20130207, end: 20130207
  4. HUMIRA [Suspect]
     Dosage: 1 IN 2 WK
     Dates: start: 20130221
  5. SPIRIVA [Suspect]
     Indication: CHRONIC OBSTRUCTIVE PULMONARY DISEASE
     Dosage: 1 DF
  6. NYSTATIN [Suspect]
     Indication: FUNGAL INFECTION
     Dosage: 100,000 UNITS
  7. SYMBICORT [Suspect]
     Indication: CHRONIC OBSTRUCTIVE PULMONARY DISEASE
     Dosage: 4 PUFF (2 PUFF, 2 IN 1 D)
  8. SIMVASTATIN [Concomitant]
     Indication: BLOOD CHOLESTEROL INCREASED
  9. PRANDIN [Concomitant]
     Indication: DIABETES MELLITUS
     Dosage: 4 MG, 3 IN 1 D
  10. AMLODIPINE [Concomitant]
     Indication: HYPERTENSION
     Dosage: 10 MG, 1 IN 1 D
  11. METOPROLOL [Concomitant]
     Indication: HYPERTENSION
     Dosage: 50 MG, 2 IN 1 D
  12. COLAZAL [Concomitant]
     Dosage: 3 TABS THREE TIMES DAILY (2250 MG)
  13. LOMOTIL [Concomitant]
     Indication: DIARRHOEA
     Dosage: 2 TABS AS REQUIRED
  14. BENTYL [Concomitant]
     Dosage: 1 TAB QID PRN
  15. NEBULIZER [Concomitant]
     Indication: CHRONIC OBSTRUCTIVE PULMONARY DISEASE
  16. VANCOMYCIN [Concomitant]
     Indication: CLOSTRIDIUM DIFFICILE INFECTION
     Dosage: 1 TABLET, 1 IN 1 D
     Dates: start: 20130326
  17. ZOLPIDEM TARTRATE [Concomitant]
     Indication: SLEEP DISORDER
     Dosage: DAILY, PRN
  18. PREDNISONE [Concomitant]
     Dosage: DAILY TAPER FROM 40MG TO 5 MG
     Dates: start: 20130316

REACTIONS (3)
  - Oral fungal infection [Unknown]
  - Clostridium difficile infection [Unknown]
  - Pneumonia [Unknown]
